FAERS Safety Report 4552725-5 (Version None)
Quarter: 2005Q1

REPORT INFORMATION
  Report Type: 
  Country: None (occurrence: None)
  Receive Date: 20050112
  Receipt Date: 20041228
  Transmission Date: 20050727
  Serious: Yes (Hospitalization, Other)
  Sender: FDA-Public Use
  Company Number: 206679

PATIENT
  Age: 59 Year
  Sex: Female
  Weight: 95.2554 kg

DRUGS (6)
  1. AVONEX [Suspect]
     Indication: MULTIPLE SCLEROSIS
     Dosage: 30 UG; QW; IM
     Route: 030
     Dates: start: 19990101, end: 20010101
  2. CELEBREX [Concomitant]
  3. KLONOPIN [Concomitant]
  4. NEXIUM [Concomitant]
  5. WELLBUTRIN [Concomitant]
  6. ZOLOFT [Concomitant]

REACTIONS (8)
  - ARTHRITIS [None]
  - BASAL CELL CARCINOMA [None]
  - BREAST CANCER [None]
  - FALL [None]
  - JOINT EFFUSION [None]
  - MALIGNANT MELANOMA [None]
  - SKIN GRAFT [None]
  - TREATMENT NONCOMPLIANCE [None]
